FAERS Safety Report 21214623 (Version 2)
Quarter: 2022Q4

REPORT INFORMATION
  Report Type: Report from Study
  Country: JP (occurrence: JP)
  Receive Date: 20220816
  Receipt Date: 20221007
  Transmission Date: 20230113
  Serious: Yes (Other)
  Sender: FDA-Public Use
  Company Number: JP-AUROBINDO-AUR-APL-2021-045529

PATIENT
  Age: 51 Year
  Sex: Male
  Weight: 68.5 kg

DRUGS (34)
  1. PRALATREXATE [Suspect]
     Active Substance: PRALATREXATE
     Indication: Cutaneous T-cell lymphoma
     Dosage: 30 MILLIGRAM/SQ. METER
     Route: 042
     Dates: start: 20180809, end: 20180809
  2. PRALATREXATE [Suspect]
     Active Substance: PRALATREXATE
     Dosage: 30 MILLIGRAM/SQ. METER
     Route: 042
     Dates: start: 20180816, end: 20180816
  3. PRALATREXATE [Suspect]
     Active Substance: PRALATREXATE
     Dosage: 30 MILLIGRAM/SQ. METER
     Route: 042
     Dates: start: 20180823, end: 20180823
  4. PRALATREXATE [Suspect]
     Active Substance: PRALATREXATE
     Dosage: 30 MILLIGRAM/SQ. METER
     Route: 042
     Dates: start: 20180830, end: 20180830
  5. PRALATREXATE [Suspect]
     Active Substance: PRALATREXATE
     Dosage: 30 MILLIGRAM/SQ. METER
     Route: 042
     Dates: start: 20181011, end: 20181011
  6. PRALATREXATE [Suspect]
     Active Substance: PRALATREXATE
     Dosage: 30 MILLIGRAM/SQ. METER
     Route: 042
     Dates: start: 20180927, end: 20180927
  7. PRALATREXATE [Suspect]
     Active Substance: PRALATREXATE
     Dosage: 30 MILLIGRAM/SQ. METER
     Route: 042
     Dates: start: 20181004, end: 20181004
  8. PRALATREXATE [Suspect]
     Active Substance: PRALATREXATE
     Dosage: 30 MILLIGRAM/SQ. METER, SINGLE
     Route: 042
     Dates: start: 20181101, end: 20181101
  9. PRALATREXATE [Suspect]
     Active Substance: PRALATREXATE
     Dosage: 30 MILLIGRAM/SQ. METER, SINGLE
     Route: 042
     Dates: start: 20181115, end: 20181129
  10. PRALATREXATE [Suspect]
     Active Substance: PRALATREXATE
     Dosage: 30 MILLIGRAM/SQ. METER, SINGLE
     Route: 042
     Dates: start: 20181122, end: 20181122
  11. PRALATREXATE [Suspect]
     Active Substance: PRALATREXATE
     Dosage: 30 MILLIGRAM/SQ. METER, SINGLE
     Route: 042
     Dates: start: 20181129, end: 20181129
  12. PRALATREXATE [Suspect]
     Active Substance: PRALATREXATE
     Dosage: 30 MILLIGRAM/SQ. METER, SINGLE
     Route: 042
     Dates: start: 20181213, end: 20181220
  13. PRALATREXATE [Suspect]
     Active Substance: PRALATREXATE
     Dosage: 30 MILLIGRAM/SQ. METER, SINGLE
     Route: 042
     Dates: start: 20190110, end: 20190117
  14. PRALATREXATE [Suspect]
     Active Substance: PRALATREXATE
     Dosage: 30 MILLIGRAM/SQ. METER, SINGLE
     Route: 042
     Dates: start: 20190117, end: 20190117
  15. PRALATREXATE [Suspect]
     Active Substance: PRALATREXATE
     Dosage: 30 MILLIGRAM/SQ. METER, SINGLE
     Route: 042
     Dates: start: 20190124, end: 20190124
  16. PRALATREXATE [Suspect]
     Active Substance: PRALATREXATE
     Dosage: 30 MILLIGRAM/SQ. METER, SINGLE
     Route: 042
     Dates: start: 20190131, end: 20190214
  17. PRALATREXATE [Suspect]
     Active Substance: PRALATREXATE
     Dosage: 30 MILLIGRAM/SQ. METER, SINGLE
     Route: 042
     Dates: start: 20190207, end: 20190207
  18. PRALATREXATE [Suspect]
     Active Substance: PRALATREXATE
     Dosage: 30 MILLIGRAM/SQ. METER, SINGLE
     Route: 042
     Dates: start: 20190214, end: 20190214
  19. PRALATREXATE [Suspect]
     Active Substance: PRALATREXATE
     Dosage: 30 MILLIGRAM/SQ. METER, SINGLE
     Route: 042
     Dates: start: 20190307, end: 20190307
  20. PRALATREXATE [Suspect]
     Active Substance: PRALATREXATE
     Dosage: 30 MILLIGRAM/SQ. METER, SINGLE
     Route: 042
     Dates: start: 20190307, end: 20190314
  21. PRALATREXATE [Suspect]
     Active Substance: PRALATREXATE
     Dosage: 30 MILLIGRAM/SQ. METER, SINGLE
     Route: 042
     Dates: start: 20190328, end: 20190411
  22. PRALATREXATE [Suspect]
     Active Substance: PRALATREXATE
     Dosage: 30 MILLIGRAM/SQ. METER, SINGLE
     Route: 042
     Dates: start: 20190404, end: 20190404
  23. PRALATREXATE [Suspect]
     Active Substance: PRALATREXATE
     Dosage: 30 MILLIGRAM/SQ. METER, SINGLE
     Route: 042
     Dates: start: 20190411, end: 20190411
  24. PRALATREXATE [Suspect]
     Active Substance: PRALATREXATE
     Dosage: 30 MILLIGRAM/SQ. METER, SINGLE
     Route: 042
     Dates: start: 20190425, end: 20190425
  25. PRALATREXATE [Suspect]
     Active Substance: PRALATREXATE
     Dosage: 30 MILLIGRAM/SQ. METER, SINGLE
     Route: 042
     Dates: start: 20190509, end: 20190516
  26. PRALATREXATE [Suspect]
     Active Substance: PRALATREXATE
     Dosage: 30 MILLIGRAM/SQ. METER, SINGLE
     Route: 042
     Dates: start: 20190516, end: 20190516
  27. PRALATREXATE [Suspect]
     Active Substance: PRALATREXATE
     Dosage: 30 MILLIGRAM/SQ. METER, SINGLE
     Route: 042
     Dates: start: 20190530, end: 20190530
  28. PRALATREXATE [Suspect]
     Active Substance: PRALATREXATE
     Dosage: 30 MILLIGRAM/SQ. METER, SINGLE
     Route: 042
     Dates: start: 20190613, end: 20190627
  29. PRALATREXATE [Suspect]
     Active Substance: PRALATREXATE
     Dosage: 30 MILLIGRAM/SQ. METER, SINGLE
     Route: 042
     Dates: start: 20190620, end: 20190620
  30. PRALATREXATE [Suspect]
     Active Substance: PRALATREXATE
     Dosage: 30 MILLIGRAM/SQ. METER, SINGLE
     Route: 042
     Dates: start: 20190711, end: 20190711
  31. PRALATREXATE [Suspect]
     Active Substance: PRALATREXATE
     Dosage: 30 MILLIGRAM/SQ. METER
     Route: 042
     Dates: start: 20181011, end: 20181011
  32. PRALATREXATE [Suspect]
     Active Substance: PRALATREXATE
     Dosage: 30 MILLIGRAM/SQ. METER
     Route: 042
     Dates: start: 20181220
  33. FOLIC ACID [Concomitant]
     Active Substance: FOLIC ACID
     Indication: Product used for unknown indication
     Dosage: UNK
     Route: 065
     Dates: start: 20180724
  34. VITAMIN B12 [Concomitant]
     Active Substance: CYANOCOBALAMIN
     Indication: Product used for unknown indication
     Dosage: UNK
     Route: 065
     Dates: start: 20180809

REACTIONS (2)
  - Liver disorder [Not Recovered/Not Resolved]
  - Stomatitis [Recovered/Resolved]

NARRATIVE: CASE EVENT DATE: 20180830
